FAERS Safety Report 6034120-5 (Version None)
Quarter: 2009Q1

REPORT INFORMATION
  Report Type: 
  Country: None (occurrence: None)
  Receive Date: 20090112
  Receipt Date: 20081029
  Transmission Date: 20090719
  Serious: No
  Sender: FDA-Public Use
  Company Number: US-BAYER-200837521NA

PATIENT
  Age: 22 Year
  Sex: Female

DRUGS (1)
  1. MIRENA [Suspect]
     Indication: DRUG USE FOR UNKNOWN INDICATION
     Route: 015
     Dates: start: 20081027

REACTIONS (6)
  - ABDOMINAL PAIN [None]
  - HEADACHE [None]
  - HYPOAESTHESIA [None]
  - INCREASED APPETITE [None]
  - IUCD COMPLICATION [None]
  - PROCEDURAL PAIN [None]
